FAERS Safety Report 10085971 (Version 2)
Quarter: 2014Q2

REPORT INFORMATION
  Report Type: Spontaneous
  Country: IE (occurrence: IE)
  Receive Date: 20140418
  Receipt Date: 20140617
  Transmission Date: 20141212
  Serious: Yes (Death, Hospitalization, Other)
  Sender: FDA-Public Use
  Company Number: IE-ROCHE-1385936

PATIENT
  Age: 62 Year
  Sex: Female

DRUGS (5)
  1. MABTHERA [Suspect]
     Indication: RHEUMATOID ARTHRITIS
     Dosage: 2 DOSES GIVEN
     Route: 042
     Dates: start: 20131121, end: 20131205
  2. PREDNISOLONE [Concomitant]
     Route: 048
  3. TRAMADOL [Concomitant]
     Route: 048
  4. ESCITALOPRAM [Concomitant]
     Route: 048
  5. SPIRIVA RESPIMAT [Concomitant]
     Indication: CHRONIC OBSTRUCTIVE PULMONARY DISEASE
     Route: 045

REACTIONS (3)
  - Sepsis [Fatal]
  - Multi-organ failure [Fatal]
  - Infective exacerbation of chronic obstructive airways disease [Unknown]
